FAERS Safety Report 6779353-5 (Version None)
Quarter: 2010Q2

REPORT INFORMATION
  Report Type: 
  Country: None (occurrence: None)
  Receive Date: 20100618
  Receipt Date: 20100610
  Transmission Date: 20101027
  Serious: Yes (Other)
  Sender: FDA-Public Use
  Company Number: PHHY2010AR37684

PATIENT
  Sex: Male

DRUGS (3)
  1. EXELON [Suspect]
     Indication: DEMENTIA ALZHEIMER'S TYPE
     Dosage: 4.6 MG/24 HR
     Route: 062
     Dates: start: 20090201
  2. EXELON [Suspect]
     Dosage: 9.5 MG/24 HR
     Route: 062
  3. PHENYTOIN SODIUM CAP [Concomitant]
     Indication: CONVULSION

REACTIONS (1)
  - AGGRESSION [None]
